FAERS Safety Report 9646271 (Version 1)
Quarter: 2013Q4

REPORT INFORMATION
  Report Type: Not Available
  Country: GB (occurrence: GB)
  Receive Date: 20131025
  Receipt Date: 20131025
  Transmission Date: 20140711
  Serious: Yes (Disabling)
  Sender: FDA-Public Use
  Company Number: GB-IAC JAPAN XML-GBR-2013-0016116

PATIENT
  Age: 52 Year
  Sex: Female

DRUGS (1)
  1. BUPRENORPHINE TRANSDERMAL SYSTEM 10 MG [Suspect]
     Dosage: 10 MCG, Q1H
     Route: 062
     Dates: end: 20130926

REACTIONS (1)
  - Skin reaction [Not Recovered/Not Resolved]
